FAERS Safety Report 6871440-6 (Version None)
Quarter: 2010Q3

REPORT INFORMATION
  Report Type: 
  Country: None (occurrence: None)
  Receive Date: 20100723
  Receipt Date: 20100716
  Transmission Date: 20110219
  Serious: Yes (Hospitalization)
  Sender: FDA-Public Use
  Company Number: US-SANOFI-AVENTIS-2010SA041956

PATIENT
  Age: 60 Year
  Sex: Male

DRUGS (5)
  1. LANTUS [Suspect]
     Indication: TYPE 2 DIABETES MELLITUS
     Route: 058
  2. LANTUS [Suspect]
     Dosage: DOSE:24 UNIT(S)
     Route: 058
     Dates: start: 20100701
  3. SOLOSTAR [Suspect]
  4. SOLOSTAR [Suspect]
     Dates: start: 20100701
  5. INSULIN DETEMIR [Concomitant]
     Dates: start: 20100501, end: 20100601

REACTIONS (2)
  - BLOOD GLUCOSE INCREASED [None]
  - POST PROCEDURAL COMPLICATION [None]
